FAERS Safety Report 16317382 (Version 1)
Quarter: 2019Q2

REPORT INFORMATION
  Report Type: Spontaneous
  Country: US (occurrence: US)
  Receive Date: 20190516
  Receipt Date: 20190516
  Transmission Date: 20190711
  Serious: No
  Sender: FDA-Public Use
  Company Number: US-GLAXOSMITHKLINE-US2019082194

PATIENT
  Age: 59 Year
  Sex: Female

DRUGS (1)
  1. FLONASE [Suspect]
     Active Substance: FLUTICASONE PROPIONATE
     Indication: HYPERSENSITIVITY
     Dosage: ISPRAY 1TIME IN EACH NOSTRIL AND SOMETIME 2
     Route: 045

REACTIONS (4)
  - Product use issue [Unknown]
  - Off label use [Unknown]
  - Incorrect product administration duration [Unknown]
  - Incorrect dose administered [Unknown]
